FAERS Safety Report 6789824-3 (Version None)
Quarter: 2010Q2

REPORT INFORMATION
  Report Type: 
  Country: None (occurrence: None)
  Receive Date: 20100624
  Receipt Date: 20100611
  Transmission Date: 20101027
  Serious: Yes (Hospitalization)
  Sender: FDA-Public Use
  Company Number: PHHY2010DE20207

PATIENT
  Sex: Male
  Weight: 89 kg

DRUGS (10)
  1. FLUVASTATIN [Suspect]
     Indication: HYPERLIPIDAEMIA
     Dosage: 80 MG/D
     Route: 048
     Dates: start: 20090528
  2. NO TREATMENT RECEIVED NOMED [Suspect]
  3. RAMIPRIL [Concomitant]
     Indication: HYPERTENSION
     Dosage: 10 MG/D
     Route: 048
     Dates: start: 20090528
  4. ASPIRIN [Concomitant]
     Indication: CORONARY ARTERY DISEASE
     Dosage: 100MG/D
     Route: 048
     Dates: start: 20090527
  5. ISCOVER [Concomitant]
     Indication: CORONARY ARTERY DISEASE
     Dosage: 45 MG/D
     Route: 048
     Dates: start: 20090527
  6. BISOPROLOL [Concomitant]
     Indication: HYPERTENSION
     Dosage: 5 MG/D
     Route: 048
     Dates: start: 20090527
  7. BETA BLOCKING AGENTS [Concomitant]
     Dosage: UNK
     Dates: start: 20090902
  8. BISOHEXAL [Concomitant]
     Indication: HYPERTENSION
     Dosage: 5 MG/D
     Route: 048
     Dates: start: 20090527
  9. OLMESARTAN MEDOXOMIL [Concomitant]
     Dosage: 20 MG/D
     Dates: start: 20090316
  10. SIMVASTATIN [Concomitant]
     Dosage: 40 MG/D

REACTIONS (6)
  - ACUTE MYOCARDIAL INFARCTION [None]
  - ANGINA PECTORIS [None]
  - CORONARY ARTERIAL STENT INSERTION [None]
  - CORONARY ARTERY DISEASE [None]
  - DYSPNOEA [None]
  - STENT PLACEMENT [None]
